FAERS Safety Report 15435967 (Version 1)
Quarter: 2018Q3

REPORT INFORMATION
  Report Type: Report from Study
  Country: IE (occurrence: IE)
  Receive Date: 20180927
  Receipt Date: 20180927
  Transmission Date: 20181010
  Serious: Yes (Other)
  Sender: FDA-Public Use
  Company Number: IE-JNJFOC-20180928259

PATIENT
  Age: 44 Year
  Sex: Male

DRUGS (4)
  1. STELARA [Suspect]
     Active Substance: USTEKINUMAB
     Indication: PSORIASIS
     Route: 058
     Dates: start: 20170620
  2. VIMPAT [Concomitant]
     Active Substance: LACOSAMIDE
     Route: 065
  3. FOLIC ACID. [Concomitant]
     Active Substance: FOLIC ACID
     Route: 065
  4. EPILIM [Concomitant]
     Active Substance: VALPROATE SODIUM
     Route: 065

REACTIONS (1)
  - Lower respiratory tract infection [Not Recovered/Not Resolved]

NARRATIVE: CASE EVENT DATE: 20180917
